FAERS Safety Report 6620059-0 (Version None)
Quarter: 2010Q1

REPORT INFORMATION
  Report Type: 
  Country: None (occurrence: None)
  Receive Date: 20100309
  Receipt Date: 20100301
  Transmission Date: 20100710
  Serious: Yes (Hospitalization)
  Sender: FDA-Public Use
  Company Number: US-GILEAD-2010-0027007

PATIENT
  Sex: Female
  Weight: 75.818 kg

DRUGS (16)
  1. LETAIRIS [Suspect]
     Indication: PULMONARY ARTERIAL HYPERTENSION
     Route: 048
     Dates: start: 20091026
  2. REMODULIN [Concomitant]
  3. SPIRONOLACTONE [Concomitant]
  4. CARVEDILOL [Concomitant]
  5. GABAPENTIN [Concomitant]
  6. SIMVASTATIN [Concomitant]
  7. VITAMIN D [Concomitant]
  8. AMITRIPTYLINE HCL [Concomitant]
  9. CLONIDINE [Concomitant]
  10. KETAMINE HCL [Concomitant]
  11. KETOPROFEN [Concomitant]
  12. LECITHIN [Concomitant]
  13. LIDOCAINE [Concomitant]
  14. POLOXAMER GEL [Concomitant]
  15. FERROUS SULFATE TAB [Concomitant]
  16. OMEPRAZOLE [Concomitant]

REACTIONS (2)
  - RENAL FAILURE ACUTE [None]
  - THROMBOCYTOPENIA [None]
